FAERS Safety Report 18596833 (Version 1)
Quarter: 2020Q4

REPORT INFORMATION
  Report Type: Spontaneous
  Country: US (occurrence: US)
  Receive Date: 20201209
  Receipt Date: 20201209
  Transmission Date: 20210114
  Serious: No
  Sender: FDA-Public Use
  Company Number: US-ELI_LILLY_AND_COMPANY-US202012002533

PATIENT
  Sex: Female
  Weight: 93.44 kg

DRUGS (3)
  1. AMBIEN [Concomitant]
     Active Substance: ZOLPIDEM TARTRATE
     Indication: SLEEP DISORDER DUE TO A GENERAL MEDICAL CONDITION
     Dosage: 12.5 ER TAKEN NIGHTLY (DAILY)
     Dates: start: 2005, end: 2020
  2. CYMBALTA [Suspect]
     Active Substance: DULOXETINE HYDROCHLORIDE
     Dosage: 60 MG, DAILY
     Route: 065
     Dates: start: 202006, end: 2020
  3. CYMBALTA [Suspect]
     Active Substance: DULOXETINE HYDROCHLORIDE
     Indication: RHEUMATOID ARTHRITIS
     Dosage: 60 MG, DAILY
     Route: 065
     Dates: start: 2005

REACTIONS (2)
  - Off label use [Unknown]
  - Weight increased [Unknown]

NARRATIVE: CASE EVENT DATE: 2005
